FAERS Safety Report 23310015 (Version 1)
Quarter: 2023Q4

REPORT INFORMATION
  Report Type: Spontaneous
  Country: MT (occurrence: MT)
  Receive Date: 20231218
  Receipt Date: 20231218
  Transmission Date: 20240110
  Serious: Yes (Other)
  Sender: FDA-Public Use
  Company Number: MT-BAXTER-2023BAX028117

PATIENT
  Age: 6 Decade
  Sex: Male

DRUGS (3)
  1. BORTEZOMIB [Suspect]
     Active Substance: BORTEZOMIB
     Indication: Plasma cell myeloma
     Dosage: 6 CYCLES, INDUCTION THERAPY ROUTE OF ADMIN (FREE TEXT): UNKNOWN ROUTE
     Route: 065
  2. CYCLOPHOSPHAMIDE [Suspect]
     Active Substance: CYCLOPHOSPHAMIDE
     Indication: Plasma cell myeloma
     Dosage: 6 CYCLES, INDUCTION THERAPY ROUTE OF ADMIN (FREE TEXT): UNKNOWN ROUTE
     Route: 065
  3. DEXAMETHASONE [Suspect]
     Active Substance: DEXAMETHASONE
     Indication: Plasma cell myeloma
     Dosage: 6 CYCLES, INDUCTION THERAPY ROUTE OF ADMIN (FREE TEXT): UNKNOWN ROUTE
     Route: 065

REACTIONS (5)
  - Oral disorder [Recovered/Resolved]
  - Kaposi^s sarcoma [Unknown]
  - Corneal lesion [Recovered/Resolved]
  - Skin lesion [Recovered/Resolved]
  - Nodular rash [Recovered/Resolved]
